FAERS Safety Report 10531205 (Version 2)
Quarter: 2014Q4

REPORT INFORMATION
  Report Type: Report from Study
  Country: GB (occurrence: GB)
  Receive Date: 20141021
  Receipt Date: 20141021
  Transmission Date: 20150529
  Serious: Yes (Hospitalization)
  Sender: FDA-Public Use
  Company Number: GB-BRISTOL-MYERS SQUIBB COMPANY-20560876

PATIENT
  Age: 41 Year
  Sex: Female

DRUGS (22)
  1. OMEGA 3 FATTY ACID [Concomitant]
     Active Substance: OMEGA-3 FATTY ACIDS
     Dates: start: 20100101
  2. OMEPRAZOLE. [Concomitant]
     Active Substance: OMEPRAZOLE
     Dates: start: 20140117
  3. TAMOXIFEN [Concomitant]
     Active Substance: TAMOXIFEN
  4. TRASTUZUMAB [Suspect]
     Active Substance: TRASTUZUMAB
     Indication: HER-2 POSITIVE BREAST CANCER
     Route: 042
     Dates: start: 20130926
  5. PARACETAMOL [Concomitant]
     Active Substance: ACETAMINOPHEN
     Dates: start: 20130925, end: 20130927
  6. PERTUZUMAB [Suspect]
     Active Substance: PERTUZUMAB
     Indication: HER-2 POSITIVE BREAST CANCER
     Dosage: LAST DOSE PRIOR TO EVENT 07FEB14
     Route: 042
     Dates: start: 20130926
  7. CHONDROITIN SULFATE (BOVINE)\GLUCOSAMINE SULFATE [Concomitant]
     Active Substance: CHONDROITIN SULFATE (BOVINE)\GLUCOSAMINE SULFATE
     Dates: start: 20100101
  8. VITAMIN C [Concomitant]
     Active Substance: ASCORBIC ACID
     Dates: start: 20100101
  9. BENYLIN [Concomitant]
     Active Substance: DIPHENHYDRAMINE HYDROCHLORIDE
  10. SELENIUM [Concomitant]
     Active Substance: SELENIUM
     Dates: start: 20100101
  11. CALCEOS [Concomitant]
     Active Substance: CALCIUM CARBONATE\CHOLECALCIFEROL
     Indication: HYPOCALCAEMIA
     Dosage: 1DF:500MG+400UNITS
     Dates: start: 20130927
  12. PIRITON [Concomitant]
     Active Substance: CHLORPHENIRAMINE MALEATE
     Dates: start: 20131004
  13. DENOSUMAB [Concomitant]
     Active Substance: DENOSUMAB
  14. LYSINE [Concomitant]
     Active Substance: LYSINE
     Dates: start: 20130930, end: 20131011
  15. VENTOLIN [Concomitant]
     Active Substance: ALBUTEROL SULFATE
     Dates: start: 20130914, end: 20131004
  16. SYMBICORT [Concomitant]
     Active Substance: BUDESONIDE\FORMOTEROL FUMARATE DIHYDRATE
     Dosage: 1DF: 2PUFFS
     Dates: start: 20130914
  17. CALCICHEW [Concomitant]
     Active Substance: CALCIUM CARBONATE
     Dates: start: 20130927
  18. HYDROCORTISONE. [Concomitant]
     Active Substance: HYDROCORTISONE
     Dosage: RESTARTED ON:27DEC13
     Dates: start: 20131004, end: 20131004
  19. PACLITAXEL. [Suspect]
     Active Substance: PACLITAXEL
     Indication: HER-2 POSITIVE BREAST CANCER
     Dosage: LAST DOSE: 24JAN14
     Route: 065
     Dates: start: 20130927
  20. IBUPROFEN. [Concomitant]
     Active Substance: IBUPROFEN
     Dosage: 1DF: 200-600MG
     Dates: start: 201305, end: 20140124
  21. SALINE [Concomitant]
     Active Substance: SODIUM CHLORIDE
     Dates: start: 20131004, end: 20131004
  22. ASACOL [Concomitant]
     Active Substance: MESALAMINE
     Dates: start: 20131115

REACTIONS (1)
  - Anaemia [Recovered/Resolved]

NARRATIVE: CASE EVENT DATE: 20140226
